FAERS Safety Report 4524507-1 (Version None)
Quarter: 2005Q1

REPORT INFORMATION
  Report Type: 
  Country: None (occurrence: None)
  Receive Date: 20041117
  Receipt Date: 20031119
  Transmission Date: 20050727
  Serious: Yes (Other)
  Sender: FDA-Public Use
  Company Number: US-JNJFOC-20031104256

PATIENT
  Age: 18 Year
  Sex: Male
  Weight: 81.6475 kg

DRUGS (4)
  1. LEVAQUIN [Suspect]
     Indication: PNEUMONIA
     Dosage: 500 MG, 1 IN 1 DAY
     Dates: start: 20031115
  2. MYSOLINE [Concomitant]
  3. LAMICTAL [Concomitant]
  4. MELLARIL [Concomitant]

REACTIONS (1)
  - CONVULSION [None]
